FAERS Safety Report 12804458 (Version 1)
Quarter: 2016Q4

REPORT INFORMATION
  Report Type: Report from Study
  Country: US (occurrence: US)
  Receive Date: 20161003
  Receipt Date: 20161003
  Transmission Date: 20170207
  Serious: Yes (Hospitalization)
  Sender: FDA-Public Use
  Company Number: US-JNJFOC-20160927076

PATIENT
  Age: 48 Year
  Sex: Female
  Weight: 62.42 kg

DRUGS (2)
  1. INFLIXIMAB, RECOMBINANT [Suspect]
     Active Substance: INFLIXIMAB
     Indication: PSORIASIS
     Route: 042
     Dates: start: 201006, end: 201405
  2. SIMPONI [Suspect]
     Active Substance: GOLIMUMAB
     Indication: PSORIASIS
     Route: 058
     Dates: start: 201404

REACTIONS (2)
  - Cellulitis [Recovered/Resolved]
  - Humerus fracture [Recovered/Resolved with Sequelae]

NARRATIVE: CASE EVENT DATE: 20150303
